FAERS Safety Report 4364445-0 (Version None)
Quarter: 2004Q2

REPORT INFORMATION
  Report Type: 
  Country: None (occurrence: None)
  Receive Date: 20040525
  Receipt Date: 20040519
  Transmission Date: 20050107
  Serious: Yes (Hospitalization)
  Sender: FDA-Public Use
  Company Number: CHROB-S-20040003

PATIENT
  Sex: Male

DRUGS (3)
  1. NAVELBINE [Suspect]
     Indication: NON-SMALL CELL LUNG CANCER
     Dosage: 40MG TWO TIMES PER WEEK
     Route: 042
     Dates: start: 20040324
  2. PARAPLATIN [Concomitant]
     Indication: NON-SMALL CELL LUNG CANCER
     Dates: start: 20040324
  3. CORTICOSTEROID [Concomitant]
     Dates: start: 20040324

REACTIONS (6)
  - APPLICATION SITE PUSTULES [None]
  - BACTERIAL INFECTION [None]
  - ERYTHEMA [None]
  - EXTRAVASATION [None]
  - OEDEMA [None]
  - VIRAL INFECTION [None]
